FAERS Safety Report 20619318 (Version 2)
Quarter: 2022Q3

REPORT INFORMATION
  Report Type: Other
  Country: JP (occurrence: JP)
  Receive Date: 20220322
  Receipt Date: 20220826
  Transmission Date: 20221026
  Serious: Yes (Death)
  Sender: FDA-Public Use
  Company Number: JP-CHUGAI-2022000610

PATIENT
  Age: 61 Year
  Sex: Female
  Weight: 50 kg

DRUGS (5)
  1. POLATUZUMAB VEDOTIN [Suspect]
     Active Substance: POLATUZUMAB VEDOTIN
     Indication: Diffuse large B-cell lymphoma
     Dosage: 1.8 MILLIGRAM/KILOGRAM, ONCE/3WEEKS
     Route: 041
     Dates: start: 20211002, end: 20211113
  2. BENDAMUSTINE HYDROCHLORIDE [Concomitant]
     Active Substance: BENDAMUSTINE HYDROCHLORIDE
     Indication: Diffuse large B-cell lymphoma
     Dosage: UNK
     Route: 041
     Dates: start: 20211003, end: 20211025
  3. RITUXIMAB [Concomitant]
     Active Substance: RITUXIMAB
     Indication: Diffuse large B-cell lymphoma
     Dosage: UNK
     Route: 041
     Dates: start: 20211002, end: 20211025
  4. ACYCLOVIR [Concomitant]
     Active Substance: ACYCLOVIR
     Indication: Infection prophylaxis
     Dosage: UNK
     Route: 065
     Dates: end: 20211126
  5. SULFAMETHOXAZOLE\TRIMETHOPRIM [Concomitant]
     Active Substance: SULFAMETHOXAZOLE\TRIMETHOPRIM
     Indication: Infection prophylaxis
     Dosage: UNK
     Route: 065
     Dates: end: 20211202

REACTIONS (2)
  - Pneumonia [Fatal]
  - Post procedural infection [Fatal]

NARRATIVE: CASE EVENT DATE: 20211201
